FAERS Safety Report 9423083 (Version 2)
Quarter: 2013Q3

REPORT INFORMATION
  Report Type: Spontaneous
  Country: US (occurrence: US)
  Receive Date: 20130726
  Receipt Date: 20130806
  Transmission Date: 20140515
  Serious: No
  Sender: FDA-Public Use
  Company Number: US-009507513-1307USA001078

PATIENT
  Sex: Female

DRUGS (1)
  1. AFRIN [Suspect]
     Indication: RESPIRATORY TRACT CONGESTION
     Dosage: UNK, BID
     Route: 045

REACTIONS (1)
  - Epistaxis [Not Recovered/Not Resolved]
